FAERS Safety Report 18144818 (Version 1)
Quarter: 2020Q3

REPORT INFORMATION
  Report Type: Spontaneous
  Country: US (occurrence: US)
  Receive Date: 20200813
  Receipt Date: 20200813
  Transmission Date: 20201103
  Serious: Yes (Other)
  Sender: FDA-Public Use
  Company Number: None

PATIENT
  Age: 46 Year
  Sex: Female
  Weight: 121.5 kg

DRUGS (15)
  1. ABILIFY 20MG PO DAILY [Concomitant]
  2. PRISTIQ 50MG PO DAILY [Concomitant]
  3. ASPIRIN 81MG PO DAILY [Concomitant]
     Active Substance: ASPIRIN
  4. LISINOPRIL 10MG PO DAILY [Concomitant]
  5. TRAZODONE PO 50MG EVERY MORNING AND 100MG EVERY EVENING [Concomitant]
  6. ATORVASTATIN 20MG PO DAILY [Concomitant]
  7. RINVOQ [Suspect]
     Active Substance: UPADACITINIB
     Indication: RHEUMATOID ARTHRITIS
     Route: 048
     Dates: start: 20200722, end: 20200811
  8. ARAVA 20MG PO DAILY [Concomitant]
  9. ELIQUIS 5MG PO BID [Concomitant]
  10. OXYCONTIN 20MG PO TID [Concomitant]
  11. PREDNISONE 5MG PO DAILY [Concomitant]
  12. REMERON 15MG PO DAILY [Concomitant]
  13. HYDROXYZINE 50MG EVERY MORNING + EVENING [Concomitant]
  14. CYCLOBENZAPRINE 20MG PO NIGHTLY [Concomitant]
  15. OXYBUTYNIN 5MG PO DAILY [Concomitant]

REACTIONS (4)
  - Abdominal discomfort [None]
  - Nausea [None]
  - Vomiting [None]
  - Dyspepsia [None]

NARRATIVE: CASE EVENT DATE: 20200807
